FAERS Safety Report 8370965-4 (Version None)
Quarter: 2012Q2

REPORT INFORMATION
  Report Type: 
  Country: None (occurrence: None)
  Receive Date: 20120518
  Receipt Date: 20120514
  Transmission Date: 20120825
  Serious: Yes (Other)
  Sender: FDA-Public Use
  Company Number: US-BAYER-2012-035473

PATIENT
  Age: 56 Year
  Sex: Male
  Weight: 79 kg

DRUGS (14)
  1. RED BLOOD CELLS [Concomitant]
     Dosage: 2 U, UNK
     Route: 042
     Dates: start: 20031027
  2. TRASYLOL [Suspect]
     Indication: CORONARY ARTERY BYPASS
     Dosage: 1 ML TEST DOSE, 100CC PUMP PRIME, 200 ML LOADING DOSE FOLLOWED BY 50 CC/HR CONTINUOUS
     Route: 042
     Dates: start: 20031027, end: 20031027
  3. PROTAMINE SULFATE [Concomitant]
  4. ETOMIDATE [Concomitant]
  5. PLASMALYTE [GLUCOSE,POTASSIUM CHLORIDE] [Concomitant]
     Dosage: 1700 CC
  6. FENTANYL-100 [Concomitant]
  7. HEPARIN [Concomitant]
  8. PROPOFOL [Concomitant]
  9. MIDAZOLAM [Concomitant]
  10. DILAUDID [Concomitant]
  11. LASIX [Concomitant]
     Dosage: 20 MG, UNK
  12. MANNITOL [Concomitant]
     Dosage: 25 G, UNK
  13. SODIUM BICARBONATE [Concomitant]
  14. ANCEF [Concomitant]

REACTIONS (2)
  - BLOOD CREATININE INCREASED [None]
  - RENAL FAILURE ACUTE [None]
